FAERS Safety Report 5725841-X (Version None)
Quarter: 2008Q2

REPORT INFORMATION
  Report Type: 
  Country: None (occurrence: None)
  Receive Date: 20080429
  Receipt Date: 20080414
  Transmission Date: 20081010
  Serious: No
  Sender: FDA-Public Use
  Company Number: 002#2#2008-00254

PATIENT
  Age: 58 Year
  Sex: Female
  Weight: 73.4827 kg

DRUGS (5)
  1. NEUPRO [Suspect]
     Indication: RESTLESS LEGS SYNDROME
     Dosage: 2MG/24H, 1 IN 1 D,TRANSDERMAL
     Route: 062
     Dates: start: 20080213
  2. CELEBREX [Concomitant]
  3. ALLEGRA [Concomitant]
  4. CYMBALTA [Concomitant]
  5. MAGNESIUM [Concomitant]

REACTIONS (4)
  - DISTURBANCE IN ATTENTION [None]
  - PHARMACEUTICAL PRODUCT COMPLAINT [None]
  - SOMNOLENCE [None]
  - THINKING ABNORMAL [None]
